FAERS Safety Report 5464873-6 (Version None)
Quarter: 2007Q3

REPORT INFORMATION
  Report Type: 
  Country: None (occurrence: None)
  Receive Date: 20070921
  Receipt Date: 20070910
  Transmission Date: 20080115
  Serious: Yes (Other)
  Sender: FDA-Public Use
  Company Number: US-PFIZER INC-2007076342

PATIENT
  Sex: Female
  Weight: 90.7 kg

DRUGS (6)
  1. GLUCOTROL XL [Suspect]
     Indication: BLOOD GLUCOSE INCREASED
     Dosage: TEXT:EVERYDAY TDD:7.5MG
  2. AVANDIA [Suspect]
     Indication: BLOOD GLUCOSE INCREASED
  3. GEMFIBROZIL [Concomitant]
  4. VITAMIN B-12 [Concomitant]
  5. NIACIN [Concomitant]
  6. POTASSIUM CHLORIDE [Concomitant]

REACTIONS (7)
  - ABDOMINAL PAIN UPPER [None]
  - BLOOD GLUCOSE INCREASED [None]
  - CARDIAC FAILURE CONGESTIVE [None]
  - DRUG INEFFECTIVE [None]
  - DYSPNOEA [None]
  - FLUID RETENTION [None]
  - MALAISE [None]
